FAERS Safety Report 21649839 (Version 2)
Quarter: 2022Q4

REPORT INFORMATION
  Report Type: Spontaneous
  Country: US (occurrence: US)
  Receive Date: 20221128
  Receipt Date: 20221219
  Transmission Date: 20230112
  Serious: Yes (Hospitalization)
  Sender: FDA-Public Use
  Company Number: US-Calliditas-2022CAL00542

PATIENT
  Age: 25 Year
  Sex: Female

DRUGS (4)
  1. TARPEYO [Suspect]
     Active Substance: BUDESONIDE
     Indication: IgA nephropathy
     Dosage: 16 MG (4 CAPSULES) DAILY
     Route: 048
     Dates: start: 20221005
  2. LEVONORGESTREL [Concomitant]
     Active Substance: LEVONORGESTREL
  3. LISINOPRIL [Concomitant]
     Active Substance: LISINOPRIL
  4. PAROXETINE [Concomitant]
     Active Substance: PAROXETINE

REACTIONS (4)
  - Renal disorder [Unknown]
  - COVID-19 [Unknown]
  - Vomiting [Unknown]
  - Product dose omission issue [Unknown]
